FAERS Safety Report 25412426 (Version 1)
Quarter: 2025Q2

REPORT INFORMATION
  Report Type: Spontaneous
  Country: ES (occurrence: ES)
  Receive Date: 20250609
  Receipt Date: 20250609
  Transmission Date: 20250717
  Serious: Yes (Other)
  Sender: PFIZER
  Company Number: ES-PFM-2025-02692

PATIENT
  Age: 71 Year
  Sex: Female

DRUGS (4)
  1. ENCORAFENIB [Suspect]
     Active Substance: ENCORAFENIB
     Indication: Lung neoplasm malignant
     Dosage: 450 MG, QD (1/DAY)
     Route: 065
     Dates: start: 20250128
  2. ENCORAFENIB [Suspect]
     Active Substance: ENCORAFENIB
     Indication: BRAF V600E mutation positive
     Route: 065
  3. BINIMETINIB [Suspect]
     Active Substance: BINIMETINIB
     Indication: BRAF V600E mutation positive
     Dosage: 45 MG, BID (2/DAY)
     Route: 065
     Dates: start: 20250128
  4. BINIMETINIB [Suspect]
     Active Substance: BINIMETINIB
     Indication: Lung neoplasm malignant
     Route: 065

REACTIONS (3)
  - Drug hypersensitivity [Recovered/Resolved]
  - Rash maculo-papular [Recovered/Resolved]
  - Retinopathy [Recovered/Resolved]

NARRATIVE: CASE EVENT DATE: 20250203
